FAERS Safety Report 24941829 (Version 1)
Quarter: 2025Q1

REPORT INFORMATION
  Report Type: Spontaneous
  Country: US (occurrence: None)
  Receive Date: 20250207
  Receipt Date: 20250207
  Transmission Date: 20250408
  Serious: Yes (Hospitalization)
  Sender: FDA-CTU
  Company Number: None

PATIENT
  Sex: Female
  Weight: 55.4 kg

DRUGS (4)
  1. CYTARABINE [Suspect]
     Active Substance: CYTARABINE
  2. METHOTREXATE [Suspect]
     Active Substance: METHOTREXATE
  3. PONATINIB [Suspect]
     Active Substance: PONATINIB
  4. ASPIRIN [Suspect]
     Active Substance: ASPIRIN

REACTIONS (1)
  - Cerebral microhaemorrhage [None]

NARRATIVE: CASE EVENT DATE: 20250130
